FAERS Safety Report 13074944 (Version 2)
Quarter: 2017Q1

REPORT INFORMATION
  Report Type: Spontaneous
  Country: US (occurrence: US)
  Receive Date: 20161230
  Receipt Date: 20170103
  Transmission Date: 20170428
  Serious: Yes (Other)
  Sender: FDA-Public Use
  Company Number: US-PFIZER INC-2016603067

PATIENT
  Age: 69 Year

DRUGS (2)
  1. EFFEXOR XR [Suspect]
     Active Substance: VENLAFAXINE HYDROCHLORIDE
     Indication: DEPRESSION
     Dosage: UNK
     Dates: start: 1997, end: 2016
  2. EFFEXOR XR [Suspect]
     Active Substance: VENLAFAXINE HYDROCHLORIDE
     Indication: HOT FLUSH

REACTIONS (15)
  - Hot flush [Unknown]
  - Drug dependence [Unknown]
  - Dizziness [Unknown]
  - Derealisation [Unknown]
  - Gastric disorder [Unknown]
  - Nausea [Unknown]
  - Headache [Unknown]
  - Hunger [Unknown]
  - Emotional disorder [Unknown]
  - Feeling of body temperature change [Unknown]
  - Malaise [Not Recovered/Not Resolved]
  - Hyperphagia [Unknown]
  - Migraine [Unknown]
  - Motion sickness [Unknown]
  - Cold sweat [Unknown]

NARRATIVE: CASE EVENT DATE: 2016
